FAERS Safety Report 5004355-9 (Version None)
Quarter: 2006Q2

REPORT INFORMATION
  Report Type: 
  Country: None (occurrence: None)
  Receive Date: 20060517
  Receipt Date: 20060503
  Transmission Date: 20061013
  Serious: Yes (Hospitalization)
  Sender: FDA-Public Use
  Company Number: FR-GLAXOSMITHKLINE-B0422461A

PATIENT
  Age: 8 Month
  Sex: Female
  Weight: 4.5 kg

DRUGS (3)
  1. AUGMENTIN '125' [Suspect]
     Dosage: 170MG THREE TIMES PER DAY
     Route: 048
     Dates: start: 20060309, end: 20060324
  2. TARGOCID [Concomitant]
     Indication: LUNG INFECTION
     Dosage: 50MG PER DAY
     Route: 065
     Dates: start: 20060316
  3. CLAFORAN [Concomitant]
     Indication: LUNG INFECTION
     Route: 065
     Dates: start: 20060316

REACTIONS (7)
  - DEHYDRATION [None]
  - DIARRHOEA [None]
  - HYPERNATRAEMIA [None]
  - HYPERPROTEINAEMIA [None]
  - HYPOKALAEMIA [None]
  - PIGMENTATION DISORDER [None]
  - PYREXIA [None]
